FAERS Safety Report 5106635-5 (Version None)
Quarter: 2006Q3

REPORT INFORMATION
  Report Type: 
  Country: None (occurrence: None)
  Receive Date: 20060913
  Receipt Date: 20060828
  Transmission Date: 20061208
  Serious: Yes (Other)
  Sender: FDA-Public Use
  Company Number: BE200608006279

PATIENT
  Age: 94 Year
  Sex: Female

DRUGS (3)
  1. CYMBALTA [Suspect]
     Indication: DEPRESSION
     Dosage: 60 MG, DAILY (1/D), ORAL
     Route: 048
  2. LEGALON /GFR/ (SILYMARIN) [Concomitant]
  3. NOOTROPIL (PIRACETAM) [Concomitant]

REACTIONS (2)
  - CHOLESTASIS [None]
  - COMA [None]
